FAERS Safety Report 21177815 (Version 1)
Quarter: 2022Q3

REPORT INFORMATION
  Report Type: Spontaneous
  Country: US (occurrence: US)
  Receive Date: 20220805
  Receipt Date: 20220805
  Transmission Date: 20221027
  Serious: Yes (Other)
  Sender: FDA-Public Use
  Company Number: US-BAYER-2022A109733

PATIENT
  Sex: Male

DRUGS (1)
  1. ASPIRIN [Interacting]
     Active Substance: ASPIRIN
     Dosage: UNK

REACTIONS (2)
  - Gastric haemorrhage [Unknown]
  - Labelled drug-drug interaction medication error [None]
